FAERS Safety Report 13416241 (Version 2)
Quarter: 2017Q2

REPORT INFORMATION
  Report Type: Spontaneous
  Country: DE (occurrence: DE)
  Receive Date: 20170406
  Receipt Date: 20170504
  Transmission Date: 20170830
  Serious: Yes (Hospitalization)
  Sender: FDA-Public Use
  Company Number: DE-JNJFOC-20170311114

PATIENT
  Age: 39 Year
  Sex: Male
  Weight: 79.6 kg

DRUGS (3)
  1. RISPERDAL [Suspect]
     Active Substance: RISPERIDONE
     Indication: PRODUCT USED FOR UNKNOWN INDICATION
     Route: 048
     Dates: start: 201702
  2. RISPERDAL CONSTA [Suspect]
     Active Substance: RISPERIDONE
     Indication: SCHIZOPHRENIA
     Route: 030
     Dates: start: 20170227
  3. RISPERDAL CONSTA [Suspect]
     Active Substance: RISPERIDONE
     Indication: SCHIZOPHRENIA
     Route: 030
     Dates: start: 20170111, end: 20170209

REACTIONS (4)
  - Psychotic symptom [Unknown]
  - Antipsychotic drug level below therapeutic [Recovered/Resolved]
  - Drug ineffective [Unknown]
  - Drug level increased [Unknown]

NARRATIVE: CASE EVENT DATE: 20170202
